FAERS Safety Report 8986199 (Version 2)
Quarter: 2013Q1

REPORT INFORMATION
  Report Type: Spontaneous
  Country: FR (occurrence: None)
  Receive Date: 20121217
  Receipt Date: 20130315
  Transmission Date: 20140127
  Serious: Yes (Other)
  Sender: FDA-Public Use
  Company Number: 2012MPI00582

PATIENT
  Age: 34 Year
  Sex: Male

DRUGS (3)
  1. BRENTUXIMAB VEDOTIN [Suspect]
     Indication: HODGKIN^S DISEASE REFRACTORY
     Dosage: Q21D
     Route: 042
     Dates: start: 20120903, end: 20121119
  2. BACTRIM [Concomitant]
     Dates: start: 2009
  3. ZELITREX (VALACICLOVIR HYDROCHLORIDE) [Concomitant]
     Dates: start: 2009

REACTIONS (4)
  - Hepatocellular injury [None]
  - Blood creatine phosphokinase increased [None]
  - Paraesthesia [None]
  - Myalgia [None]
